FAERS Safety Report 6917235-6 (Version None)
Quarter: 2010Q3

REPORT INFORMATION
  Report Type: 
  Country: None (occurrence: None)
  Receive Date: 20100805
  Receipt Date: 20100728
  Transmission Date: 20110219
  Serious: Yes (Hospitalization)
  Sender: FDA-Public Use
  Company Number: TPA2009A01486

PATIENT
  Age: 52 Year
  Sex: Female
  Weight: 108.4097 kg

DRUGS (3)
  1. DEXLANSOPRAZOLE [Suspect]
     Indication: PRODUCT USED FOR UNKNOWN INDICATION
     Dosage: 60 MG, ONCE, PER ORAL
     Route: 048
     Dates: start: 20090615, end: 20100615
  2. KEFLEX [Concomitant]
  3. METRONIDAZOLE [Concomitant]

REACTIONS (12)
  - ABDOMINAL PAIN UPPER [None]
  - CHEILITIS [None]
  - DIARRHOEA [None]
  - DRUG HYPERSENSITIVITY [None]
  - HYPOTENSION [None]
  - LOSS OF CONSCIOUSNESS [None]
  - NAUSEA [None]
  - OXYGEN SATURATION DECREASED [None]
  - PARAESTHESIA ORAL [None]
  - THINKING ABNORMAL [None]
  - VISION BLURRED [None]
  - VOMITING [None]
